FAERS Safety Report 9035346 (Version 1)
Quarter: 2013Q1

REPORT INFORMATION
  Report Type: Report from Study
  Country: US (occurrence: US)
  Receive Date: 20130129
  Receipt Date: 20130129
  Transmission Date: 20140127
  Serious: No
  Sender: FDA-Public Use
  Company Number: US-ABBOTT-12P-163-0897831-00

PATIENT
  Age: 58 Year
  Sex: Female

DRUGS (9)
  1. HUMIRA 40 MG/0.8 ML PEN [Suspect]
     Indication: CROHN^S DISEASE
     Dates: start: 201111
  2. DIOVAN [Concomitant]
     Indication: HYPERTENSION
  3. LIALDA [Concomitant]
     Indication: CROHN^S DISEASE
     Dosage: 4 TABS BID
  4. SILENOR [Concomitant]
     Indication: INSOMNIA
     Dosage: AT NIGHT TIME
  5. SILENOR [Concomitant]
     Indication: DEPRESSION
  6. ROZEREM [Concomitant]
     Indication: INSOMNIA
     Dosage: AT NIGHT
  7. LUNESTA [Concomitant]
     Indication: INSOMNIA
  8. LUNESTA [Concomitant]
     Indication: DEPRESSION
  9. REQUIP [Concomitant]
     Indication: RESTLESS LEGS SYNDROME
     Dosage: BID

REACTIONS (1)
  - Pruritus [Recovered/Resolved]
